FAERS Safety Report 12644183 (Version 1)
Quarter: 2016Q3

REPORT INFORMATION
  Report Type: Spontaneous
  Country: PT (occurrence: PT)
  Receive Date: 20160811
  Receipt Date: 20160811
  Transmission Date: 20161109
  Serious: Yes (Other)
  Sender: FDA-Public Use
  Company Number: PT-AUROBINDO-AUR-APL-2016-10324

PATIENT
  Age: 50 Year
  Sex: Female

DRUGS (1)
  1. LOSARTAN 100MG [Suspect]
     Active Substance: LOSARTAN
     Indication: HYPERTENSION
     Dosage: 100 MG
     Route: 065

REACTIONS (2)
  - Transaminases increased [Recovered/Resolved]
  - Liver injury [Recovered/Resolved]
